FAERS Safety Report 9829229 (Version 1)
Quarter: 2014Q1

REPORT INFORMATION
  Report Type: Spontaneous
  Country: US (occurrence: US)
  Receive Date: 20140119
  Receipt Date: 20140119
  Transmission Date: 20141002
  Serious: Yes (Other)
  Sender: FDA-Public Use
  Company Number: US-AMGEN-USASP2014002682

PATIENT
  Sex: Female

DRUGS (3)
  1. EPOGEN [Suspect]
     Indication: NEPHROGENIC ANAEMIA
     Dosage: 10000 UNITS WEEKLY
     Route: 065
     Dates: start: 2005, end: 2009
  2. POTASSIUM [Concomitant]
     Dosage: UNK
  3. AMBIEN [Concomitant]
     Dosage: UNK

REACTIONS (2)
  - Anaemia [Unknown]
  - Anti-erythropoietin antibody positive [Unknown]
